FAERS Safety Report 4631674-8 (Version None)
Quarter: 2005Q3

REPORT INFORMATION
  Report Type: 
  Country: None (occurrence: None)
  Receive Date: 20050407
  Receipt Date: 20050401
  Transmission Date: 20060218
  Serious: Yes (Congenital Anomaly, Other)
  Sender: FDA-Public Use
  Company Number: 2005-BP-05406RO

PATIENT
  Sex: 0

DRUGS (2)
  1. METHOTREXATE [Suspect]
     Dosage: 7.5 MG/WEEK (MATERNAL EXPOSURE) , IU; 8.3 GESTATIONAL WEEKS
     Route: 015
  2. SULFASALAZINE [Suspect]
     Dosage: 3 G/D (MATERNAL EXPOSURE), IU; 8.3 GESTATIONAL WEEKS
     Route: 015

REACTIONS (9)
  - ABORTION INDUCED [None]
  - ABORTION SPONTANEOUS [None]
  - CAESAREAN SECTION [None]
  - DRUG EXPOSURE DURING PREGNANCY [None]
  - HAEMANGIOMA [None]
  - JAUNDICE NEONATAL [None]
  - NEONATAL RESPIRATORY DISTRESS SYNDROME [None]
  - PREMATURE LABOUR [None]
  - TALIPES [None]
